FAERS Safety Report 5915853-5 (Version None)
Quarter: 2008Q4

REPORT INFORMATION
  Report Type: 
  Country: None (occurrence: None)
  Receive Date: 20081010
  Receipt Date: 20080930
  Transmission Date: 20090506
  Serious: Yes (Other)
  Sender: FDA-Public Use
  Company Number: DE-PFIZER INC-2008082345

PATIENT
  Sex: Male

DRUGS (2)
  1. GABAPENTIN [Suspect]
     Dates: start: 20080101
  2. LYRICA [Suspect]
     Route: 048
     Dates: start: 20080101, end: 20080101

REACTIONS (2)
  - BLOOD BILIRUBIN INCREASED [None]
  - LEUKOPENIA [None]
